FAERS Safety Report 7494826 (Version 23)
Quarter: 2012Q4

REPORT INFORMATION
  Report Type: 
  Country: US (occurrence: US)
  Receive Date: 20100722
  Receipt Date: 20120905
  Transmission Date: 20130627
  Serious: Yes (Other)
  Sender: FDA-Public Use
  Company Number: US-CELGENEUS-163-21880-10070947

PATIENT
  Age: 45 None
  Sex: Female

DRUGS (31)
  1. REVLIMID [Suspect]
     Indication: MULTIPLE MYELOMA
     Dosage: 25 Milligram
     Route: 048
     Dates: start: 20100624, end: 2010
  2. REVLIMID [Suspect]
     Dosage: 15 Milligram
     Route: 048
     Dates: start: 201007, end: 2010
  3. REVLIMID [Suspect]
     Dosage: 5 Milligram
     Route: 048
     Dates: start: 201012
  4. ACYCLOVIR [Concomitant]
     Indication: ANTIVIRAL PROPHYLAXIS
     Dosage: 800 Milligram
     Route: 048
     Dates: start: 20100610
  5. ACYCLOVIR [Concomitant]
     Dosage: 90 Gram
     Route: 061
     Dates: start: 20111201
  6. QVAR [Concomitant]
     Indication: ASTHMA
     Dosage: 2 puffs
     Route: 055
     Dates: start: 20100927
  7. QVAR [Concomitant]
     Dosage: 2 puffs
     Route: 055
     Dates: start: 20111110
  8. BUDESONIDE/FORMOTEROL [Concomitant]
     Indication: DRUG USE FOR UNKNOWN INDICATION
     Dosage: 160/4.5mcg/2 sprays
     Route: 055
     Dates: start: 20100927
  9. BUDESONIDE/FORMOTEROL [Concomitant]
     Dosage: 160/4.5mcg/2 sprays
     Route: 055
     Dates: start: 20111110
  10. TEGRETOL [Concomitant]
     Indication: PERIPHERAL NEUROPATHY NOS
     Dosage: 200 Milligram
     Route: 048
     Dates: start: 20100809
  11. VITAMIN D3 [Concomitant]
     Indication: PERIPHERAL NEUROPATHY NOS
     Dosage: 1000 Units, 1 tablet
     Route: 048
     Dates: start: 20100608
  12. DEXAMETHASONE [Concomitant]
     Indication: DRUG USE FOR UNKNOWN INDICATION
     Dosage: 40 Milligram
     Route: 048
     Dates: start: 20100610
  13. VITAMIN D2 [Concomitant]
     Indication: DRUG USE FOR UNKNOWN INDICATION
     Dosage: 1.25 Milligram
     Route: 048
     Dates: start: 20100614
  14. FLUTICASONE PROPIONATE [Concomitant]
     Indication: ALLERGIC RHINITIS
     Dosage: 2 sprays
     Route: 045
     Dates: start: 20100927
  15. FLUTICASONE PROPIONATE [Concomitant]
     Dosage: 2 sprays
     Route: 045
     Dates: start: 20111110
  16. PRILOSEC [Concomitant]
     Indication: ACID REFLUX (OESOPHAGEAL)
     Dosage: 20 Milligram
     Route: 048
     Dates: start: 20100726
  17. PRILOSEC [Concomitant]
     Dosage: 20 Milligram
     Route: 048
     Dates: start: 20111010
  18. ALBUTEROL [Concomitant]
     Indication: ASTHMA
     Dosage: 1-2 puffs
     Route: 055
     Dates: start: 20100927
  19. ALBUTEROL [Concomitant]
     Dosage: 1-2 puffs
     Route: 055
     Dates: start: 20111110
  20. DILAUDID [Concomitant]
     Indication: DRUG USE FOR UNKNOWN INDICATION
     Dosage: 8 Milligram
     Route: 048
     Dates: start: 20101011
  21. DILAUDID [Concomitant]
     Dosage: 8 Milligram
     Route: 048
     Dates: start: 20120815
  22. ATROVENT [Concomitant]
     Indication: DRUG USE FOR UNKNOWN INDICATION
     Dosage: .09 Percent
     Route: 045
     Dates: start: 20100927
  23. ATROVENT [Concomitant]
     Dosage: 1.8 Percent
     Route: 045
     Dates: start: 20111110
  24. LIDODERM [Concomitant]
     Indication: PAIN
     Dosage: 1 patch
     Route: 061
     Dates: start: 20100927
  25. LIDODERM [Concomitant]
     Dosage: 700 Milligram
     Route: 061
     Dates: start: 20110615
  26. PHENERGAN [Concomitant]
     Indication: NAUSEA
     Dosage: 100 Milligram
     Route: 048
     Dates: start: 20110110
  27. PHENERGAN [Concomitant]
     Indication: VOMITING
     Dosage: 100 Milligram
     Route: 048
     Dates: start: 20120529
  28. SYMBICORT [Concomitant]
     Indication: DRUG USE FOR UNKNOWN INDICATION
     Dosage: 160/4.5mcg, 2 Sprays
     Route: 055
     Dates: start: 20100927
  29. SYMBICORT [Concomitant]
     Dosage: 160/4.5mcg, 2 Sprays
     Route: 055
     Dates: start: 20111110
  30. PROAIR HFA [Concomitant]
     Indication: DRUG USE FOR UNKNOWN INDICATION
     Dosage: 90 Microgram
     Route: 055
     Dates: start: 20100927
  31. ASPIRIN [Concomitant]
     Indication: DRUG USE FOR UNKNOWN INDICATION
     Dosage: 325 Milligram
     Route: 048
     Dates: start: 20110523

REACTIONS (1)
  - Human chorionic gonadotropin increased [Unknown]
